FAERS Safety Report 10427121 (Version 2)
Quarter: 2014Q3

REPORT INFORMATION
  Report Type: Spontaneous
  Country: ES (occurrence: ES)
  Receive Date: 20140903
  Receipt Date: 20140915
  Transmission Date: 20150326
  Serious: Yes (Other)
  Sender: FDA-Public Use
  Company Number: ES-AMGEN-ESPSP2014065742

PATIENT
  Age: 64 Year
  Sex: Male

DRUGS (11)
  1. PROLIA [Suspect]
     Active Substance: DENOSUMAB
     Indication: OSTEOPOROSIS
     Dosage: 60 MG, UNK
     Route: 065
     Dates: start: 20140822
  2. DEPAKINE                           /00228501/ [Concomitant]
     Active Substance: VALPROIC ACID
     Indication: EPILEPSY
     Dosage: 300-500 MG
  3. KEPPRA [Concomitant]
     Active Substance: LEVETIRACETAM
     Dosage: 1 PILL AND HALF IN THE MORNING AND 1 PILL AND A HALF AT NIGHT
  4. RASILEZ [Concomitant]
     Active Substance: ALISKIREN
     Dosage: 300 MG, UNK
  5. CITALOPRAM [Concomitant]
     Active Substance: CITALOPRAM HYDROBROMIDE
  6. DUODART [Concomitant]
     Active Substance: DUTASTERIDE\TAMSULOSIN
  7. AAS [Concomitant]
     Active Substance: ASPIRIN
     Dosage: 100 MG, UNK
  8. SINTROM [Concomitant]
     Active Substance: ACENOCOUMAROL
  9. SIMVASTATIN. [Concomitant]
     Active Substance: SIMVASTATIN
  10. OMEPRAZOL                          /00661201/ [Concomitant]
     Active Substance: OMEPRAZOLE
  11. MASTICAL [Concomitant]

REACTIONS (12)
  - Disorientation [Unknown]
  - Back pain [Recovering/Resolving]
  - Weight bearing difficulty [Unknown]
  - Musculoskeletal stiffness [Unknown]
  - Pain in extremity [Not Recovered/Not Resolved]
  - Malaise [Not Recovered/Not Resolved]
  - Fatigue [Unknown]
  - Abasia [Unknown]
  - Gait disturbance [Not Recovered/Not Resolved]
  - Headache [Unknown]
  - Adverse event [Unknown]
  - Nausea [Recovering/Resolving]

NARRATIVE: CASE EVENT DATE: 201408
